FAERS Safety Report 4454946-9 (Version None)
Quarter: 2004Q3

REPORT INFORMATION
  Report Type: 
  Country: None (occurrence: None)
  Receive Date: 20040824
  Receipt Date: 20040507
  Transmission Date: 20050211
  Serious: No
  Sender: FDA-Public Use
  Company Number: SU-2004-002350

PATIENT
  Age: 72 Year
  Sex: Male
  Weight: 81.6475 kg

DRUGS (4)
  1. BENICAR [Suspect]
     Indication: HYPERTENSION
     Dosage: 20 MG QD PO
     Route: 048
     Dates: start: 20040503
  2. LANOXIN [Concomitant]
  3. ASPIRIN [Concomitant]
  4. ALTOCOR [Concomitant]

REACTIONS (3)
  - CONDITION AGGRAVATED [None]
  - EXTRASYSTOLES [None]
  - PALPITATIONS [None]
